FAERS Safety Report 6638132-X (Version None)
Quarter: 2010Q1

REPORT INFORMATION
  Report Type: 
  Country: None (occurrence: None)
  Receive Date: 20100315
  Receipt Date: 20100315
  Transmission Date: 20100710
  Serious: Yes (Death)
  Sender: FDA-Public Use
  Company Number: None

PATIENT
  Age: 79 Year
  Sex: Male

DRUGS (10)
  1. REVLIMID [Suspect]
     Indication: MULTIPLE MYELOMA
     Dosage: 5MG DAILY ORALLY
     Route: 048
  2. FLONASE [Concomitant]
  3. FLOMAX [Concomitant]
  4. OMEPRAZOLE [Concomitant]
  5. MEGESTROL [Concomitant]
  6. VICODIN [Concomitant]
  7. ASPIRIN [Concomitant]
  8. MULTI-VITAMIN [Concomitant]
  9. FINASTERIDE [Concomitant]
  10. SIMVASTATIN [Concomitant]

REACTIONS (5)
  - ANAEMIA [None]
  - CARDIOPULMONARY FAILURE [None]
  - CEREBROVASCULAR ACCIDENT [None]
  - HYPOGLYCAEMIC ENCEPHALOPATHY [None]
  - UNRESPONSIVE TO STIMULI [None]
